FAERS Safety Report 8483208-8 (Version None)
Quarter: 2012Q3

REPORT INFORMATION
  Report Type: 
  Country: None (occurrence: None)
  Receive Date: 20120702
  Receipt Date: 20120625
  Transmission Date: 20120928
  Serious: Yes (Hospitalization)
  Sender: FDA-Public Use
  Company Number: FI-PFIZER INC-2012148231

PATIENT
  Age: 84 Year
  Sex: Male

DRUGS (8)
  1. NORVASC [Concomitant]
     Dosage: 5 MG, 1X/DAY
     Route: 048
  2. MEMANTINE HYDROCHLORIDE [Concomitant]
     Dosage: 10 MG, 1X/DAY
     Route: 048
  3. PRIMASPAN [Concomitant]
     Dosage: 100 MG, 1X/DAY
     Route: 048
  4. DONEPEZIL HYDROCHLORIDE [Concomitant]
     Dosage: 10 MG, 1X/DAY
     Route: 048
  5. SYMBICORT [Concomitant]
     Dosage: 1 INHALATION TWICE DAILY
     Route: 055
  6. SPIRIVA [Concomitant]
     Dosage: 18 UG, 1X/DAY
     Route: 055
  7. ESTRACYT [Suspect]
     Indication: PROSTATE CANCER
     Dosage: 2X2
     Route: 048
     Dates: start: 20120530, end: 20120611
  8. ENALAPRIL MALEATE [Concomitant]
     Dosage: 10 MG, 1X/DAY
     Route: 048

REACTIONS (1)
  - ANGIOEDEMA [None]
